FAERS Safety Report 15343383 (Version 1)
Quarter: 2018Q3

REPORT INFORMATION
  Report Type: Spontaneous
  Country: FR (occurrence: FR)
  Receive Date: 20180903
  Receipt Date: 20180903
  Transmission Date: 20181010
  Serious: Yes (Other)
  Sender: FDA-Public Use
  Company Number: FR-ROCHE-2178706

PATIENT
  Age: 12 Year
  Sex: Female

DRUGS (2)
  1. HAVLANE [Suspect]
     Active Substance: LOPRAZOLAM
     Indication: CHEMICAL SUBMISSION
     Route: 048
     Dates: start: 20171125, end: 20171125
  2. RIVOTRIL [Suspect]
     Active Substance: CLONAZEPAM
     Indication: CHEMICAL SUBMISSION
     Route: 048
     Dates: start: 20171125, end: 20171125

REACTIONS (1)
  - Victim of chemical submission [Recovered/Resolved]

NARRATIVE: CASE EVENT DATE: 20171125
